FAERS Safety Report 6423342-7 (Version None)
Quarter: 2009Q4

REPORT INFORMATION
  Report Type: 
  Country: None (occurrence: None)
  Receive Date: 20091028
  Receipt Date: 20090825
  Transmission Date: 20100525
  Serious: Yes (Death)
  Sender: FDA-Public Use
  Company Number: ADR18172009

PATIENT
  Age: 77 Year
  Sex: Female

DRUGS (1)
  1. AMLODIPINE [Suspect]
     Indication: HYPERTENSION
     Dosage: 5 MG - 1/1 DAY
     Dates: start: 20060530

REACTIONS (14)
  - ARRHYTHMIA [None]
  - ARTERIOSCLEROSIS [None]
  - CORONARY ARTERY STENOSIS [None]
  - DIZZINESS [None]
  - DRUG LEVEL INCREASED [None]
  - FIBULA FRACTURE [None]
  - HUMERUS FRACTURE [None]
  - HYPERTENSION [None]
  - IMPAIRED DRIVING ABILITY [None]
  - PELVIC FRACTURE [None]
  - POISONING [None]
  - SKULL FRACTURE [None]
  - TRAUMATIC LIVER INJURY [None]
  - TRAUMATIC LUNG INJURY [None]
